FAERS Safety Report 4459515-2 (Version None)
Quarter: 2004Q3

REPORT INFORMATION
  Report Type: 
  Country: None (occurrence: None)
  Receive Date: 20040910
  Receipt Date: 20040526
  Transmission Date: 20050211
  Serious: No
  Sender: FDA-Public Use
  Company Number: 2004216371US

PATIENT
  Age: 78 Year
  Sex: Female

DRUGS (1)
  1. BEXTRA [Suspect]
     Indication: OSTEOARTHRITIS
     Dosage: 10 MG, QD, UNK
     Route: 065
     Dates: start: 20040526, end: 20040526

REACTIONS (3)
  - LACRIMATION INCREASED [None]
  - SNEEZING [None]
  - THROAT IRRITATION [None]
